FAERS Safety Report 14022336 (Version 1)
Quarter: 2017Q3

REPORT INFORMATION
  Report Type: Spontaneous
  Country: US (occurrence: US)
  Receive Date: 20170929
  Receipt Date: 20170929
  Transmission Date: 20171128
  Serious: Yes (Life-Threatening, Hospitalization, Disabling)
  Sender: FDA-Public Use
  Company Number: None

PATIENT

DRUGS (1)
  1. LORAZEPAM. [Suspect]
     Active Substance: LORAZEPAM
     Indication: GENERALISED ANXIETY DISORDER
     Dates: end: 20160601

REACTIONS (4)
  - Depression [None]
  - Suicidal ideation [None]
  - Psychotic disorder [None]
  - Withdrawal syndrome [None]

NARRATIVE: CASE EVENT DATE: 20170901
